FAERS Safety Report 7495103-1 (Version None)
Quarter: 2011Q2

REPORT INFORMATION
  Report Type: 
  Country: None (occurrence: None)
  Receive Date: 20110520
  Receipt Date: 20110511
  Transmission Date: 20111010
  Serious: Yes (Hospitalization)
  Sender: FDA-Public Use
  Company Number: ES-ELI_LILLY_AND_COMPANY-ES201105003110

PATIENT
  Sex: Female
  Weight: 55 kg

DRUGS (4)
  1. PRISDAL [Concomitant]
     Indication: MENTAL DISORDER
     Dosage: UNK
     Route: 048
  2. IDALPREM [Concomitant]
     Indication: MENTAL DISORDER
     Dosage: UNK
     Route: 048
  3. FORTEO [Suspect]
     Indication: OSTEOPOROSIS
     Dosage: 20 UG, QD
     Route: 058
     Dates: start: 20101216, end: 20110401
  4. TOPIRAMATO [Concomitant]
     Indication: MENTAL DISORDER
     Dosage: 100 MG, UNKNOWN
     Route: 048

REACTIONS (2)
  - DRUG DOSE OMISSION [None]
  - PSYCHIATRIC SYMPTOM [None]
